FAERS Safety Report 9997875 (Version 3)
Quarter: 2014Q2

REPORT INFORMATION
  Report Type: Spontaneous
  Country: US (occurrence: US)
  Receive Date: 20140311
  Receipt Date: 20140513
  Transmission Date: 20141212
  Serious: Yes (Death, Hospitalization, Other)
  Sender: FDA-Public Use
  Company Number: US-PFIZER INC-2014066400

PATIENT
  Age: 69 Year
  Sex: Female

DRUGS (5)
  1. REVATIO [Suspect]
     Indication: PULMONARY ARTERIAL HYPERTENSION
     Dosage: 20 MG, 3X/DAY
     Route: 048
     Dates: start: 20100812, end: 20140319
  2. METOPROLOL [Concomitant]
     Indication: CARDIAC DISORDER
     Dosage: UNK
  3. METOPROLOL [Concomitant]
     Indication: BLOOD PRESSURE ABNORMAL
  4. DIGOXIN [Concomitant]
     Indication: CARDIAC DISORDER
     Dosage: UNK
  5. DIGOXIN [Concomitant]
     Indication: BLOOD PRESSURE ABNORMAL

REACTIONS (9)
  - Lung disorder [Fatal]
  - Pulmonary hypertension [Fatal]
  - Cardiac failure [Fatal]
  - Hypoxia [Unknown]
  - Respiratory failure [Unknown]
  - Hypercapnia [Unknown]
  - Renal failure acute [Unknown]
  - Sepsis [Unknown]
  - Haemoptysis [Unknown]
